FAERS Safety Report 18403813 (Version 1)
Quarter: 2020Q4

REPORT INFORMATION
  Report Type: Spontaneous
  Country: US (occurrence: US)
  Receive Date: 20201020
  Receipt Date: 20201020
  Transmission Date: 20210114
  Serious: No
  Sender: FDA-Public Use
  Company Number: US-GILEAD-2020-0499837

PATIENT
  Sex: Male

DRUGS (2)
  1. HYDROCORTISONE BUTYRATE. [Concomitant]
     Active Substance: HYDROCORTISONE BUTYRATE
  2. TRUVADA [Suspect]
     Active Substance: EMTRICITABINE\TENOFOVIR DISOPROXIL FUMARATE
     Indication: EXPOSURE TO COMMUNICABLE DISEASE
     Dosage: 200MG-300MG
     Route: 048
     Dates: start: 202004

REACTIONS (2)
  - Off label use [Unknown]
  - Hypertension [Unknown]
